FAERS Safety Report 12517048 (Version 1)
Quarter: 2016Q2

REPORT INFORMATION
  Report Type: Spontaneous
  Country: US (occurrence: US)
  Receive Date: 20160630
  Receipt Date: 20160630
  Transmission Date: 20160815
  Serious: No
  Sender: FDA-Public Use
  Company Number: US-PFIZER INC-2016283385

PATIENT
  Age: 46 Year
  Sex: Female
  Weight: 38.56 kg

DRUGS (7)
  1. ZITHROMAX [Suspect]
     Active Substance: AZITHROMYCIN DIHYDRATE
     Dosage: 250 MG, DAILY (SPLIT THE TABLET AND TOOK IT EVERY TWO HOURS)
     Route: 048
     Dates: start: 20160530, end: 20160530
  2. CHLORHEXIDINE [Concomitant]
     Active Substance: CHLORHEXIDINE
     Indication: DENTAL CARE
     Dosage: UNK (ORAL SWISH AND SPIT TWICE A DAY)
     Route: 048
     Dates: start: 20160526
  3. ZITHROMAX [Suspect]
     Active Substance: AZITHROMYCIN DIHYDRATE
     Indication: DENTAL OPERATION
     Dosage: 500 MG, DAILY (LOADING DOSE OF TWO 250 MG TABLETS)
     Route: 048
     Dates: start: 20160527, end: 20160527
  4. ZITHROMAX [Suspect]
     Active Substance: AZITHROMYCIN DIHYDRATE
     Dosage: 250 MG, 1X/DAY
     Route: 048
     Dates: start: 20160528, end: 20160529
  5. ZOVIRAX [Concomitant]
     Active Substance: ACYCLOVIR
     Indication: HERPES SIMPLEX
     Dosage: 200 MG, 1X/DAY
     Route: 048
     Dates: start: 1998
  6. ZITHROMAX [Suspect]
     Active Substance: AZITHROMYCIN DIHYDRATE
     Dosage: 1 DF, 3X/DAY (TAKE A THIRD OF A TABLET 3 TIMES A DAY)
  7. PROBIOTIC [Concomitant]
     Active Substance: PROBIOTICS NOS
     Indication: SUPPLEMENTATION THERAPY
     Dosage: UNK, 2X/DAY (ABOUT 2 BILLION UNITS IN THE AM AND 2 BILLION UNITS IN THE PM)

REACTIONS (12)
  - Gastric disorder [Not Recovered/Not Resolved]
  - Inappropriate schedule of drug administration [Unknown]
  - Bone disorder [Unknown]
  - Wrong technique in product usage process [Unknown]
  - Muscle tightness [Unknown]
  - Abdominal discomfort [Unknown]
  - Dyspepsia [Recovered/Resolved]
  - Flatulence [Unknown]
  - Dyspnoea [Recovered/Resolved]
  - Heart rate increased [Recovered/Resolved]
  - Hyperchlorhydria [Recovered/Resolved]
  - Throat tightness [Unknown]

NARRATIVE: CASE EVENT DATE: 20160529
